FAERS Safety Report 12294164 (Version 1)
Quarter: 2016Q2

REPORT INFORMATION
  Report Type: Spontaneous
  Country: GB (occurrence: GB)
  Receive Date: 20160422
  Receipt Date: 20160422
  Transmission Date: 20160815
  Serious: Yes (Other)
  Sender: FDA-Public Use
  Company Number: GB-ROCHE-1744556

PATIENT
  Age: 60 Year
  Sex: Female

DRUGS (4)
  1. CISPLATIN. [Concomitant]
     Active Substance: CISPLATIN
  2. CARBOPLATIN. [Concomitant]
     Active Substance: CARBOPLATIN
  3. AVASTIN [Suspect]
     Active Substance: BEVACIZUMAB
     Indication: ADENOCARCINOMA OF THE CERVIX
     Route: 065
  4. PACLITAXEL. [Concomitant]
     Active Substance: PACLITAXEL

REACTIONS (6)
  - Bladder hypertrophy [Unknown]
  - Back pain [Unknown]
  - Haematuria [Unknown]
  - Metastatic neoplasm [Unknown]
  - Cervix carcinoma recurrent [Unknown]
  - Dysuria [Unknown]
